FAERS Safety Report 6293402-2 (Version None)
Quarter: 2009Q3

REPORT INFORMATION
  Report Type: 
  Country: None (occurrence: None)
  Receive Date: 20090731
  Receipt Date: 20090721
  Transmission Date: 20100115
  Serious: Yes (Hospitalization, Other)
  Sender: FDA-Public Use
  Company Number: NO-ELI_LILLY_AND_COMPANY-NO200906001616

PATIENT
  Age: 57 Year
  Sex: Female

DRUGS (5)
  1. OLANZAPINE [Suspect]
     Indication: BIPOLAR DISORDER
     Dosage: 15 MG, DAILY (1/D)
     Route: 048
     Dates: start: 20060701
  2. ZOLOFT [Concomitant]
  3. ORFIRIL [Concomitant]
  4. LIPITOR [Concomitant]
  5. NEXIUM [Concomitant]

REACTIONS (9)
  - ARTERY DISSECTION [None]
  - BALANCE DISORDER [None]
  - BASILAR ARTERY OCCLUSION [None]
  - CEREBROVASCULAR ACCIDENT [None]
  - DIPLOPIA [None]
  - FACIAL PALSY [None]
  - HYPOTHERMIA [None]
  - VERTEBRAL ARTERY OCCLUSION [None]
  - VERTIGO [None]
